FAERS Safety Report 9861335 (Version 2)
Quarter: 2014Q1

REPORT INFORMATION
  Report Type: Report from Study
  Country: CO (occurrence: CO)
  Receive Date: 20140203
  Receipt Date: 20140211
  Transmission Date: 20141002
  Serious: Yes (Hospitalization)
  Sender: FDA-Public Use
  Company Number: CO-ROCHE-1342450

PATIENT
  Age: 77 Year
  Sex: Female

DRUGS (1)
  1. LUCENTIS [Suspect]
     Indication: MACULAR OEDEMA
     Route: 050
     Dates: start: 20130820

REACTIONS (1)
  - Angina unstable [Recovering/Resolving]
